FAERS Safety Report 12857255 (Version 1)
Quarter: 2016Q4

REPORT INFORMATION
  Report Type: Spontaneous
  Country: US (occurrence: US)
  Receive Date: 20161018
  Receipt Date: 20161018
  Transmission Date: 20170207
  Serious: No
  Sender: FDA-Public Use
  Company Number: US-APOTEX-2015AP015176

PATIENT
  Sex: Male

DRUGS (1)
  1. FLUTICASONE PROPIONATE. [Suspect]
     Active Substance: FLUTICASONE PROPIONATE
     Indication: NASAL CONGESTION
     Dosage: 2 SPAY PER NOSTRIL EACH MORNING
     Route: 045
     Dates: end: 20151127

REACTIONS (9)
  - Sneezing [Not Recovered/Not Resolved]
  - Nasal discomfort [Unknown]
  - Nasal dryness [Not Recovered/Not Resolved]
  - Nasal oedema [Not Recovered/Not Resolved]
  - Bloody discharge [Not Recovered/Not Resolved]
  - Pyrexia [Not Recovered/Not Resolved]
  - Pruritus [Unknown]
  - Rhinorrhoea [Not Recovered/Not Resolved]
  - Pain [Unknown]

NARRATIVE: CASE EVENT DATE: 20151127
